FAERS Safety Report 7641821-1 (Version None)
Quarter: 2011Q3

REPORT INFORMATION
  Report Type: 
  Country: None (occurrence: None)
  Receive Date: 20110728
  Receipt Date: 20110714
  Transmission Date: 20111222
  Serious: Yes (Hospitalization, Other)
  Sender: FDA-Public Use
  Company Number: US-AMGEN-USASP2011032223

PATIENT
  Age: 85 Year
  Sex: Male
  Weight: 83.9 kg

DRUGS (6)
  1. XGEVA [Suspect]
     Indication: METASTASES TO BONE
     Dosage: 120 MG, ONE TIME DOSE
     Route: 042
     Dates: start: 20110615
  2. CENTRUM SILVER                     /01292501/ [Concomitant]
  3. LUPRON DEPOT [Concomitant]
     Dosage: UNK
     Dates: start: 20100901
  4. LASIX [Concomitant]
     Dosage: 80 MG, QD
  5. LANDROLEN [Concomitant]
  6. LEUPROLIDE ACETATE [Concomitant]

REACTIONS (25)
  - LOSS OF CONSCIOUSNESS [None]
  - EXTRASYSTOLES [None]
  - URINARY INCONTINENCE [None]
  - SECRETION DISCHARGE [None]
  - MOVEMENT DISORDER [None]
  - HALLUCINATION [None]
  - BONE PAIN [None]
  - EXCORIATION [None]
  - DECREASED APPETITE [None]
  - JOINT RANGE OF MOTION DECREASED [None]
  - INCORRECT ROUTE OF DRUG ADMINISTRATION [None]
  - CONFUSIONAL STATE [None]
  - LUNG NEOPLASM [None]
  - PLEURAL FIBROSIS [None]
  - ASTHENIA [None]
  - MUSCULOSKELETAL PAIN [None]
  - OSTEOARTHRITIS [None]
  - DEHYDRATION [None]
  - CHRONIC OBSTRUCTIVE PULMONARY DISEASE [None]
  - ARTHRALGIA [None]
  - FALL [None]
  - EMOTIONAL DISTRESS [None]
  - MUCOSAL DRYNESS [None]
  - RHABDOMYOLYSIS [None]
  - VENTRICULAR EXTRASYSTOLES [None]
